FAERS Safety Report 9464771 (Version 1)
Quarter: 2013Q3

REPORT INFORMATION
  Report Type: Spontaneous
  Country: JP (occurrence: JP)
  Receive Date: 20130819
  Receipt Date: 20130819
  Transmission Date: 20140515
  Serious: Yes (Hospitalization)
  Sender: FDA-Public Use
  Company Number: JP-VIIV HEALTHCARE LIMITED-B0909925A

PATIENT
  Age: 26 Year
  Sex: Female
  Weight: 66 kg

DRUGS (5)
  1. COMBIVIR [Suspect]
     Indication: HIV INFECTION
     Route: 048
     Dates: start: 20120123
  2. KALETRA [Concomitant]
     Indication: HIV INFECTION
     Route: 048
     Dates: start: 20130123
  3. UTEMERIN [Concomitant]
     Indication: THREATENED LABOUR
     Route: 048
     Dates: start: 20130610, end: 20130711
  4. ATONIN O [Concomitant]
     Indication: PREMATURE LABOUR
     Route: 042
     Dates: start: 20130711
  5. DINOPROST [Concomitant]
     Indication: PREMATURE LABOUR
     Route: 042
     Dates: start: 20130711

REACTIONS (3)
  - Threatened labour [Recovered/Resolved]
  - Exposure during pregnancy [Unknown]
  - Live birth [Unknown]
